FAERS Safety Report 21835777 (Version 1)
Quarter: 2023Q1

REPORT INFORMATION
  Report Type: Spontaneous
  Country: US (occurrence: US)
  Receive Date: 20230109
  Receipt Date: 20230109
  Transmission Date: 20230418
  Serious: No
  Sender: FDA-Public Use
  Company Number: None

PATIENT
  Age: 70 Year
  Sex: Female

DRUGS (1)
  1. ZEJULA [Suspect]
     Active Substance: NIRAPARIB
     Indication: Ovarian cancer metastatic
     Dosage: 100 MG, QD (2 CAPSULE)
     Dates: start: 202010

REACTIONS (6)
  - Blood test abnormal [Not Recovered/Not Resolved]
  - Headache [Unknown]
  - Fatigue [Unknown]
  - Bone pain [Unknown]
  - Myalgia [Unknown]
  - Lymphadenopathy [Unknown]
